FAERS Safety Report 11273886 (Version 1)
Quarter: 2015Q3

REPORT INFORMATION
  Report Type: Spontaneous
  Country: US (occurrence: US)
  Receive Date: 20150715
  Receipt Date: 20150715
  Transmission Date: 20151125
  Serious: No
  Sender: FDA-Public Use
  Company Number: US-BAYER-2015-377743

PATIENT
  Age: 6 Year
  Sex: Female
  Weight: 28.57 kg

DRUGS (3)
  1. CLARITIN REDITABS [Suspect]
     Active Substance: LORATADINE
     Dosage: 2 DF, ONCE
     Route: 048
     Dates: start: 20150710, end: 20150710
  2. FLINTSTONES GUMMIES [Concomitant]
     Active Substance: VITAMINS
     Dosage: UNK
  3. CLARITIN REDITABS [Suspect]
     Active Substance: LORATADINE
     Dosage: UNK
     Route: 048

REACTIONS (1)
  - Accidental exposure to product by child [None]

NARRATIVE: CASE EVENT DATE: 20150710
